FAERS Safety Report 25863005 (Version 1)
Quarter: 2025Q3

REPORT INFORMATION
  Report Type: Spontaneous
  Country: US (occurrence: US)
  Receive Date: 20250930
  Receipt Date: 20250930
  Transmission Date: 20251020
  Serious: No
  Sender: DR REDDYS
  Company Number: US-DRL-USA-USA/2025/09/014273

PATIENT
  Sex: Female

DRUGS (1)
  1. DIFLUPREDNATE [Suspect]
     Active Substance: DIFLUPREDNATE
     Indication: Iridocyclitis
     Dosage: ONE DROP INTO THE CONJUNCTIVAL SAC OF THE AFFECTED EYE 4?TIMES DAILY FOR 14 DAYS
     Route: 047

REACTIONS (3)
  - Eye irritation [Not Recovered/Not Resolved]
  - Head discomfort [Not Recovered/Not Resolved]
  - Feeling abnormal [Not Recovered/Not Resolved]
